FAERS Safety Report 11865712 (Version 1)
Quarter: 2015Q4

REPORT INFORMATION
  Report Type: Spontaneous
  Country: DE (occurrence: DE)
  Receive Date: 20151223
  Receipt Date: 20151223
  Transmission Date: 20160305
  Serious: Yes (Hospitalization, Other)
  Sender: FDA-Public Use
  Company Number: DE-JNJFOC-20141206332

PATIENT
  Age: 22 Year
  Sex: Male

DRUGS (2)
  1. YONDELIS [Suspect]
     Active Substance: TRABECTEDIN
     Indication: METASTASES TO LUNG
     Dosage: METHOD OF ADMINISTRATION: LONG?]TERM??INFUSION (DRIP)
     Route: 065
     Dates: start: 20100909
  2. YONDELIS [Suspect]
     Active Substance: TRABECTEDIN
     Route: 065

REACTIONS (1)
  - Cardiomyopathy [Not Recovered/Not Resolved]

NARRATIVE: CASE EVENT DATE: 201303
